FAERS Safety Report 13346057 (Version 1)
Quarter: 2017Q1

REPORT INFORMATION
  Report Type: Report from Study
  Country: CA (occurrence: CA)
  Receive Date: 20170317
  Receipt Date: 20170317
  Transmission Date: 20170428
  Serious: Yes (Hospitalization)
  Sender: FDA-Public Use
  Company Number: CA-INCYTE CORPORATION-2016IN001838

PATIENT
  Age: 61 Year
  Sex: Male

DRUGS (1)
  1. JAKAVI [Suspect]
     Active Substance: RUXOLITINIB
     Indication: POLYCYTHAEMIA VERA
     Dosage: 10 MG, BID
     Route: 048
     Dates: start: 20160211

REACTIONS (8)
  - Wound complication [Unknown]
  - Diarrhoea [Unknown]
  - Cardiac disorder [Recovering/Resolving]
  - Abdominal pain [Unknown]
  - Headache [Unknown]
  - Cough [Unknown]
  - Full blood count increased [Recovered/Resolved]
  - Wound [Unknown]

NARRATIVE: CASE EVENT DATE: 201612
